FAERS Safety Report 25030650 (Version 1)
Quarter: 2025Q1

REPORT INFORMATION
  Report Type: Spontaneous
  Country: IN (occurrence: IN)
  Receive Date: 20250303
  Receipt Date: 20250303
  Transmission Date: 20250409
  Serious: Yes (Death, Life-Threatening, Hospitalization)
  Sender: ACCORD
  Company Number: IN-MLMSERVICE-20250217-PI417942-00101-1

PATIENT
  Age: 36 Year
  Sex: Female

DRUGS (2)
  1. CISPLATIN [Suspect]
     Active Substance: CISPLATIN
     Indication: NUT midline carcinoma
  2. FLUOROURACIL [Suspect]
     Active Substance: FLUOROURACIL
     Indication: NUT midline carcinoma
     Dosage: FIRST CYCLE (IV 24-HOUR INFUSION D 1-D4)?DOSE: 1G/M2?CUMULATIVE DOSE: 4 G/M2

REACTIONS (1)
  - Neutropenia [Fatal]
